FAERS Safety Report 5262426-6 (Version None)
Quarter: 2007Q1

REPORT INFORMATION
  Report Type: 
  Country: None (occurrence: None)
  Receive Date: 20061219
  Receipt Date: 20060628
  Transmission Date: 20070707
  Serious: Yes (Hospitalization)
  Sender: FDA-Public Use
  Company Number: PHEH2006US08412

PATIENT
  Age: 28 Year
  Sex: Female

DRUGS (5)
  1. SANDOSTATIN [Suspect]
     Indication: PANCREATIC CARCINOMA
     Dosage: 500 UG, SUBCUTANEOUS
     Route: 058
     Dates: start: 20060627, end: 20060627
  2. ENOXAPARIN (ENOXAPARIN, HEPARIN-FRACTION) [Concomitant]
  3. REGLAN /USA/ (METOCLOPRAMIDE HYDROCHLORIDE) [Concomitant]
  4. PREVACID [Concomitant]
  5. HYDROMORPHONE HCL [Concomitant]

REACTIONS (1)
  - NAUSEA [None]
